FAERS Safety Report 9902917 (Version 3)
Quarter: 2014Q2

REPORT INFORMATION
  Report Type: Report from Study
  Country: DE (occurrence: DE)
  Receive Date: 20140217
  Receipt Date: 20140425
  Transmission Date: 20141212
  Serious: Yes (Death)
  Sender: FDA-Public Use
  Company Number: PHHY2014DE019044

PATIENT
  Sex: Male

DRUGS (7)
  1. AMN107 [Suspect]
     Indication: CHRONIC MYELOID LEUKAEMIA
     Dosage: 800 MG, DAY
     Route: 048
     Dates: start: 20110825, end: 20130507
  2. INSULIN [Concomitant]
  3. BICALUTAMIDE [Concomitant]
     Dates: start: 20100122
  4. NOVAMINSULFON [Concomitant]
     Dosage: 30 DRP, QID
     Dates: start: 20120111
  5. HYALURONIC ACID [Concomitant]
     Dates: start: 2012
  6. METOPROLOL [Concomitant]
  7. ASS [Concomitant]

REACTIONS (2)
  - Myocardial infarction [Fatal]
  - Chest discomfort [Fatal]
